FAERS Safety Report 5912014-0 (Version None)
Quarter: 2008Q4

REPORT INFORMATION
  Report Type: 
  Country: None (occurrence: None)
  Receive Date: 20081006
  Receipt Date: 20080923
  Transmission Date: 20090506
  Serious: Yes (Hospitalization, Disabling)
  Sender: FDA-Public Use
  Company Number: 2008S1017262

PATIENT
  Age: 59 Year
  Sex: Female

DRUGS (8)
  1. LOVASTATIN [Suspect]
     Indication: DYSLIPIDAEMIA
     Dosage: 40 MG; DAILY; 20 MG; DAILY
  2. LOVASTATIN [Suspect]
     Indication: HYPERCHOLESTEROLAEMIA
     Dosage: 40 MG; DAILY; 20 MG; DAILY
  3. DANAZOL [Suspect]
     Indication: PLATELET COUNT DECREASED
     Dosage: 600 MG; DAILY
  4. CALCIUM CARBONATE (CALCIUM CARBONATE) [Concomitant]
  5. LABETALOL HCL [Concomitant]
  6. GLIPIZIDE (GLIPIZIDE) [Concomitant]
  7. SILYMARIN (SILYBUM MARIANUM) [Concomitant]
  8. ALPRAZOLAM [Concomitant]

REACTIONS (13)
  - ANAEMIA [None]
  - ANION GAP INCREASED [None]
  - BLOOD GLUCOSE INCREASED [None]
  - BLOOD PRESSURE INCREASED [None]
  - CHRONIC HEPATITIS [None]
  - DISEASE RECURRENCE [None]
  - DRUG INTERACTION [None]
  - ELECTROLYTE IMBALANCE [None]
  - PANCREATITIS [None]
  - QUADRIPARESIS [None]
  - RENAL ATROPHY [None]
  - RHABDOMYOLYSIS [None]
  - THYROID FUNCTION TEST ABNORMAL [None]
